FAERS Safety Report 6331274-8 (Version None)
Quarter: 2009Q3

REPORT INFORMATION
  Report Type: 
  Country: None (occurrence: None)
  Receive Date: 20090827
  Receipt Date: 20090817
  Transmission Date: 20100115
  Serious: Yes (Hospitalization, Other)
  Sender: FDA-Public Use
  Company Number: US-ELI_LILLY_AND_COMPANY-US200908004501

PATIENT
  Sex: Male

DRUGS (2)
  1. ALIMTA [Suspect]
     Dosage: 500 MG/M2, UNK
     Dates: start: 20090813, end: 20090813
  2. CARBOPLATIN [Concomitant]
     Dates: start: 20090813, end: 20090813

REACTIONS (6)
  - ADVERSE REACTION [None]
  - AGGRESSION [None]
  - INCOHERENT [None]
  - INCONTINENCE [None]
  - PRESYNCOPE [None]
  - PRURITUS [None]
